FAERS Safety Report 5393285-9 (Version None)
Quarter: 2007Q3

REPORT INFORMATION
  Report Type: 
  Country: None (occurrence: None)
  Receive Date: 20070723
  Receipt Date: 20070716
  Transmission Date: 20080115
  Serious: Yes (Hospitalization, Other)
  Sender: FDA-Public Use
  Company Number: PHNU2005DE03901

PATIENT
  Age: 61 Year
  Sex: Male
  Weight: 90 kg

DRUGS (4)
  1. ZOMETA [Suspect]
     Indication: MULTIPLE MYELOMA
     Dosage: 4 MG, QMO
     Dates: start: 20030601, end: 20050901
  2. AUTOLOGOUS TRANSPLANTATION [Concomitant]
     Dosage: PBSCT
     Dates: start: 20040123, end: 20040123
  3. IMMUNE GLOBULIN INTRAVENOUS (HUMAN) [Concomitant]
     Dates: start: 20041101
  4. PLAVIX [Concomitant]
     Dates: start: 20041101

REACTIONS (11)
  - BIOPSY [None]
  - BONE DEBRIDEMENT [None]
  - BONE DISORDER [None]
  - DENTAL TREATMENT [None]
  - HYPOAESTHESIA ORAL [None]
  - JAW OPERATION [None]
  - OSTEOMYELITIS [None]
  - OSTEONECROSIS [None]
  - PRIMARY SEQUESTRUM [None]
  - TOOTH EXTRACTION [None]
  - WOUND DEHISCENCE [None]
